FAERS Safety Report 23380881 (Version 5)
Quarter: 2024Q4

REPORT INFORMATION
  Report Type: Spontaneous
  Country: US (occurrence: US)
  Receive Date: 20240109
  Receipt Date: 20241226
  Transmission Date: 20250114
  Serious: No
  Sender: LUPIN
  Company Number: US-LUPIN PHARMACEUTICALS INC.-2024-00014

PATIENT

DRUGS (3)
  1. ALBUTEROL SULFATE [Suspect]
     Active Substance: ALBUTEROL SULFATE
     Indication: Asthma
     Dosage: UNK, 2 PUFFS AS NEEDED
     Dates: start: 2023
  2. ALBUTEROL SULFATE [Suspect]
     Active Substance: ALBUTEROL SULFATE
     Dosage: 2 PUFFS BY MOUTH EVERY DAY
     Dates: start: 20241023
  3. ALBUTEROL SULFATE [Suspect]
     Active Substance: ALBUTEROL SULFATE
     Dosage: 2 PUFFS BY MOUTH EVERY DAY
     Dates: start: 20241023

REACTIONS (5)
  - Dyspnoea [Unknown]
  - Nasal congestion [Unknown]
  - Drug dose omission by device [Unknown]
  - Wrong technique in product usage process [Unknown]
  - Device deposit issue [Unknown]
